FAERS Safety Report 7713664-1 (Version None)
Quarter: 2011Q3

REPORT INFORMATION
  Report Type: 
  Country: None (occurrence: None)
  Receive Date: 20110826
  Receipt Date: 20110804
  Transmission Date: 20111222
  Serious: Yes (Disabling)
  Sender: FDA-Public Use
  Company Number: NL-AMGEN-NLDNI2011039444

PATIENT
  Sex: Female

DRUGS (10)
  1. CYCLOPHOSPHAMIDE [Suspect]
     Indication: BREAST CANCER
     Dosage: 1010 MG, QD
     Route: 042
     Dates: start: 20110617
  2. DOCETAXEL [Suspect]
     Indication: BREAST CANCER
     Dosage: 101 MG, QD
     Route: 042
     Dates: start: 20060711
  3. ZOLEDRONIC ACID [Suspect]
     Indication: BREAST CANCER
     Dosage: 4.0 MG, QD
     Route: 042
     Dates: start: 20110618, end: 20110728
  4. FOSINOPRIL W/HYDROCHLOROTHIAZIDE [Concomitant]
  5. NEULASTA [Suspect]
     Indication: CHEMOTHERAPY
  6. DOXORUBICIN HCL [Suspect]
     Indication: BREAST CANCER
     Dosage: 152 MG, QD
     Route: 042
     Dates: start: 20110617
  7. DEXAMETHASONE [Concomitant]
  8. LERDIP [Concomitant]
  9. METOPROLOL [Concomitant]
  10. ONDANSETRON [Concomitant]

REACTIONS (1)
  - TOOTH LOSS [None]
